FAERS Safety Report 23342225 (Version 2)
Quarter: 2024Q2

REPORT INFORMATION
  Report Type: Spontaneous
  Country: GR (occurrence: GR)
  Receive Date: 20231227
  Receipt Date: 20240507
  Transmission Date: 20240716
  Serious: Yes (Life-Threatening, Hospitalization, Other)
  Sender: FDA-Public Use
  Company Number: None

PATIENT
  Age: 13 Year
  Sex: Male
  Weight: 37 kg

DRUGS (8)
  1. VFEND [Suspect]
     Active Substance: VORICONAZOLE
     Indication: Bronchopulmonary aspergillosis
     Dosage: 300 MG, 2X/DAY
     Route: 042
     Dates: start: 20231109, end: 20231114
  2. HYDROCORTISONE [Concomitant]
     Active Substance: HYDROCORTISONE
     Indication: Blood sodium
     Dosage: 6 MG, 3X/DAY
     Route: 042
     Dates: start: 20231028
  3. MEROPENEM [Concomitant]
     Active Substance: MEROPENEM
     Indication: Bronchopulmonary aspergillosis
     Dosage: 1.3 G, 3X/DAY
     Route: 042
     Dates: start: 20231109, end: 20231120
  4. SULFAMETHOXAZOLE\TRIMETHOPRIM [Concomitant]
     Active Substance: SULFAMETHOXAZOLE\TRIMETHOPRIM
     Indication: Prophylaxis
     Dosage: 160 MG, 2X/DAY
     Route: 042
     Dates: start: 20230421
  5. AMBISOME [Concomitant]
     Active Substance: AMPHOTERICIN B
     Indication: Bronchopulmonary aspergillosis
     Dosage: 120 MG, 1X/DAY
     Route: 042
     Dates: start: 20231108
  6. CAPTOPRIL [Concomitant]
     Active Substance: CAPTOPRIL
     Dosage: UNK
  7. ALDACTONE [Concomitant]
     Active Substance: SPIRONOLACTONE
     Indication: Urinary incontinence
     Dosage: 6.25 MG, 2X/DAY
     Route: 042
     Dates: start: 20231108
  8. LINEZOLID [Concomitant]
     Active Substance: LINEZOLID
     Indication: Bronchopulmonary aspergillosis
     Dosage: 370 MG, 3X/DAY
     Route: 042
     Dates: start: 20231109, end: 20231119

REACTIONS (2)
  - Seizure [Recovered/Resolved]
  - Altered state of consciousness [Recovered/Resolved]

NARRATIVE: CASE EVENT DATE: 20231114
